FAERS Safety Report 11779254 (Version 1)
Quarter: 2015Q4

REPORT INFORMATION
  Report Type: Spontaneous
  Country: US (occurrence: US)
  Receive Date: 20151125
  Receipt Date: 20151125
  Transmission Date: 20160304
  Serious: No
  Sender: FDA-Public Use
  Company Number: US-PFIZER INC-2015409493

PATIENT
  Sex: Male

DRUGS (1)
  1. ADVIL [Suspect]
     Active Substance: IBUPROFEN
     Dosage: ONE TABLET BY MOUTH IN THE MORNING AND ONE TABLET BY MOUTH IN THE EVENING
     Route: 048

REACTIONS (1)
  - Haematuria [Unknown]
